FAERS Safety Report 6781208-7 (Version None)
Quarter: 2010Q2

REPORT INFORMATION
  Report Type: 
  Country: None (occurrence: None)
  Receive Date: 20100621
  Receipt Date: 20100611
  Transmission Date: 20101027
  Serious: Yes (Other)
  Sender: FDA-Public Use
  Company Number: US-PFIZER INC-2010073828

PATIENT
  Sex: Male
  Weight: 117.91 kg

DRUGS (4)
  1. CELEBREX [Suspect]
     Indication: INFLAMMATION
     Dosage: 200 MG, DAILY
     Route: 048
     Dates: start: 20100201, end: 20100201
  2. CELEBREX [Suspect]
     Dosage: 200 MG, 2X/DAY
     Route: 048
     Dates: start: 20100607, end: 20100611
  3. ATENOLOL [Concomitant]
     Indication: HYPERTENSION
     Dosage: UNK
  4. LIPITOR [Concomitant]
     Indication: BLOOD CHOLESTEROL INCREASED
     Dosage: UNK

REACTIONS (3)
  - DRUG INEFFECTIVE [None]
  - MUSCLE SPASMS [None]
  - MUSCLE TWITCHING [None]
